FAERS Safety Report 9009814 (Version 2)
Quarter: 2013Q1

REPORT INFORMATION
  Report Type: Spontaneous
  Country: US (occurrence: US)
  Receive Date: 20130110
  Receipt Date: 20130124
  Transmission Date: 20140127
  Serious: No
  Sender: FDA-Public Use
  Company Number: US-009507513-1301USA004404

PATIENT
  Age: 58 Year
  Sex: Female
  Weight: 63.49 kg

DRUGS (3)
  1. CLARITIN-D 24 HOUR [Suspect]
     Indication: HYPERSENSITIVITY
     Dosage: 10 MG, ONCE
     Route: 048
     Dates: start: 20121221, end: 20121222
  2. CLARITIN-D 24 HOUR [Suspect]
     Indication: SINUS DISORDER
  3. KLONOPIN [Concomitant]
     Indication: ANXIETY
     Dosage: 5 MG, QD

REACTIONS (2)
  - Insomnia [Recovered/Resolved]
  - Nervousness [Recovered/Resolved]
